FAERS Safety Report 21578530 (Version 1)
Quarter: 2022Q4

REPORT INFORMATION
  Report Type: Spontaneous
  Country: NL (occurrence: NL)
  Receive Date: 20221110
  Receipt Date: 20221110
  Transmission Date: 20230113
  Serious: Yes (Life-Threatening, Hospitalization)
  Sender: FDA-Public Use
  Company Number: None

PATIENT
  Sex: Female
  Weight: 75 kg

DRUGS (2)
  1. ETHINYL ESTRADIOL\LEVONORGESTREL [Suspect]
     Active Substance: ETHINYL ESTRADIOL\LEVONORGESTREL
     Indication: Contraception
     Dosage: 1 DOSAGE FORMS DAILY; 1 X 1 , 30/150UG / BRAND NAME NOT SPECIFIED ,  THERAPY END DATE : ASKU
     Dates: start: 20090101
  2. NADROPARIN CALCIUM [Concomitant]
     Active Substance: NADROPARIN CALCIUM
     Indication: Product used for unknown indication
     Dosage: INJECTION FLUID, 9500 IU/ML (UNITS PER MILLILITER) , NADROPARINE INJVLST 9500IE/ML / FRAXIPARINE INJ

REACTIONS (1)
  - Portal vein thrombosis [Not Recovered/Not Resolved]
